FAERS Safety Report 8251580-X (Version None)
Quarter: 2012Q1

REPORT INFORMATION
  Report Type: 
  Country: None (occurrence: None)
  Receive Date: 20120328
  Receipt Date: 20120315
  Transmission Date: 20120608
  Serious: Yes (Other)
  Sender: FDA-Public Use
  Company Number: 2012MA003468

PATIENT
  Sex: Female
  Weight: 68.0396 kg

DRUGS (8)
  1. HYDROCHLOROTHIAZIDE [Concomitant]
  2. OMEPRAZOLE [Concomitant]
  3. CYCLOBENZAPRINE HCL [Concomitant]
  4. METOCLOPRAMIDE [Suspect]
     Indication: ILEUS
     Dosage: 10 MG;QID;PO
     Route: 048
     Dates: start: 20020601, end: 20090701
  5. METOCLOPRAMIDE [Suspect]
     Indication: HYSTERECTOMY
     Dosage: 10 MG;QID;PO
     Route: 048
     Dates: start: 20020601, end: 20090701
  6. METOCLOPRAMIDE [Suspect]
     Indication: GASTROOESOPHAGEAL REFLUX DISEASE
     Dosage: 10 MG;QID;PO
     Route: 048
     Dates: start: 20020601, end: 20090701
  7. IBUPROFEN [Concomitant]
  8. PAROXETINE [Concomitant]

REACTIONS (7)
  - ECZEMA [None]
  - EXTRAPYRAMIDAL DISORDER [None]
  - HYPERTENSION [None]
  - EMOTIONAL DISORDER [None]
  - ECONOMIC PROBLEM [None]
  - RASH [None]
  - COITAL BLEEDING [None]
